FAERS Safety Report 6789927-3 (Version None)
Quarter: 2010Q2

REPORT INFORMATION
  Report Type: 
  Country: None (occurrence: None)
  Receive Date: 20100624
  Receipt Date: 20100519
  Transmission Date: 20101027
  Serious: No
  Sender: FDA-Public Use
  Company Number: US-BAYER-201023033NA

PATIENT

DRUGS (5)
  1. BETASERON [Suspect]
     Indication: DRUG USE FOR UNKNOWN INDICATION
     Dosage: TOTAL DAILY DOSE: 8 MIU
     Dates: end: 20090825
  2. BETASERON [Suspect]
     Dosage: TOTAL DAILY DOSE: 4 MIU
     Dates: start: 20090825, end: 20091001
  3. BETASERON [Suspect]
     Dosage: AS USED: 6 MIU
     Dates: start: 20091001
  4. BETASERON [Suspect]
     Dosage: AS USED: 6 MIU
     Dates: start: 20091201, end: 20100422
  5. NORTRIPTYLINE [Concomitant]

REACTIONS (1)
  - HEPATIC FUNCTION ABNORMAL [None]
